FAERS Safety Report 8816464 (Version 1)
Quarter: 2012Q4

REPORT INFORMATION
  Report Type: Spontaneous
  Country: US (occurrence: None)
  Receive Date: 20120927
  Receipt Date: 20120927
  Transmission Date: 20130627
  Serious: No
  Sender: FDA-Public Use
  Company Number: B0832776A

PATIENT
  Age: 49 Year
  Sex: Female

DRUGS (5)
  1. SALBUTAMOL SULPHATE [Suspect]
  2. IPRATROPIUM BROMIDE [Suspect]
     Route: 055
  3. TERBUTALINE [Suspect]
  4. OXYGEN [Concomitant]
  5. METHYLPREDNISOLONE [Concomitant]

REACTIONS (6)
  - Respiratory distress [None]
  - No therapeutic response [None]
  - Blood pressure increased [None]
  - Lactic acidosis [None]
  - Heart rate increased [None]
  - Asthma [None]
